FAERS Safety Report 8969905 (Version 1)
Quarter: 2012Q4

REPORT INFORMATION
  Report Type: Report from Study
  Country: NL (occurrence: NL)
  Receive Date: 20121217
  Receipt Date: 20121217
  Transmission Date: 20130627
  Serious: Yes (Hospitalization)
  Sender: FDA-Public Use
  Company Number: NL-B.I. PHARMACEUTICALS,INC./RIDGEFIELD-2012-NL-00537NL

PATIENT
  Age: 64 Year
  Sex: Male

DRUGS (8)
  1. PRADAXA [Suspect]
     Dosage: 300 mg
     Dates: start: 20121116, end: 20121118
  2. METOPROLOL [Concomitant]
     Dosage: 200 mg
  3. FUROSEMIDE [Concomitant]
  4. ATORVASTATINE [Concomitant]
     Dosage: 10 mg
  5. ACETYLSALICYLZUUR [Concomitant]
     Dosage: 80 mg
  6. LOSARTAN [Concomitant]
     Dosage: 100 mg
  7. ISOSORBIDEMONONITRAAT [Concomitant]
     Dosage: 50 mg
  8. LOSARTAN/HYDROCHLOORTHIAZIDE [Concomitant]
     Dosage: 50 RT

REACTIONS (1)
  - Headache [Recovered/Resolved]
